FAERS Safety Report 5835212-3 (Version None)
Quarter: 2008Q3

REPORT INFORMATION
  Report Type: 
  Country: None (occurrence: None)
  Receive Date: 20080804
  Receipt Date: 20080625
  Transmission Date: 20090109
  Serious: Yes (Hospitalization, Other)
  Sender: FDA-Public Use
  Company Number: 2008BI016884

PATIENT
  Age: 52 Year
  Sex: Male

DRUGS (6)
  1. ZEVALIN [Suspect]
     Indication: B-CELL LYMPHOMA
     Dosage: 915 MBQ; 1X; IV
     Route: 042
     Dates: start: 20080111, end: 20080111
  2. RITUXIMAB (CON.) [Concomitant]
  3. CARMUSTINE (CON.) [Concomitant]
  4. ETOPOSIDE (CON.) [Concomitant]
  5. CYTARABINE (CON.) [Concomitant]
  6. MELPHALAN (CON.) [Concomitant]

REACTIONS (8)
  - APLASIA [None]
  - ATHETOSIS [None]
  - CHOREA [None]
  - DERMATITIS EXFOLIATIVE [None]
  - INTERSTITIAL LUNG DISEASE [None]
  - LUNG INFECTION [None]
  - MONONUCLEOSIS SYNDROME [None]
  - RASH ERYTHEMATOUS [None]
